FAERS Safety Report 8517905-2 (Version None)
Quarter: 2012Q3

REPORT INFORMATION
  Report Type: 
  Country: None (occurrence: None)
  Receive Date: 20120718
  Receipt Date: 20110712
  Transmission Date: 20120928
  Serious: No
  Sender: FDA-Public Use
  Company Number: US-BRISTOL-MYERS SQUIBB COMPANY-15896400

PATIENT
  Sex: Male

DRUGS (2)
  1. BROVANA [Suspect]
     Indication: CHRONIC OBSTRUCTIVE PULMONARY DISEASE
     Dosage: 1DF:15 UG/2ML
     Dates: start: 20110401
  2. COUMADIN [Suspect]

REACTIONS (1)
  - ALOPECIA [None]
